FAERS Safety Report 17211636 (Version 1)
Quarter: 2019Q4

REPORT INFORMATION
  Report Type: Spontaneous
  Country: US (occurrence: US)
  Receive Date: 20191229
  Receipt Date: 20191229
  Transmission Date: 20200122
  Serious: No
  Sender: FDA-Public Use
  Company Number: US-MICRO LABS LIMITED-ML2019-02104

PATIENT
  Age: 63 Year
  Sex: Female

DRUGS (1)
  1. CROMOLYN SODIUM ORAL SOLUTION 100 MG/5 ML [Suspect]
     Active Substance: CROMOLYN SODIUM
     Indication: MAST CELL ACTIVATION SYNDROME
     Route: 048

REACTIONS (3)
  - Product substitution issue [Unknown]
  - Multiple allergies [Unknown]
  - Drug ineffective [Unknown]
